FAERS Safety Report 18840091 (Version 1)
Quarter: 2021Q1

REPORT INFORMATION
  Report Type: Spontaneous
  Country: BE (occurrence: BE)
  Receive Date: 20210204
  Receipt Date: 20210204
  Transmission Date: 20210419
  Serious: Yes (Death, Other)
  Sender: FDA-Public Use
  Company Number: BE-SA-2021SA032692

PATIENT
  Age: 83 Year
  Sex: Female
  Weight: 66 kg

DRUGS (10)
  1. BISOPROLOL [Concomitant]
     Active Substance: BISOPROLOL
     Dosage: 75 MG, QD
  2. ACTRAPID [Concomitant]
     Active Substance: INSULIN HUMAN
  3. CLEXANE [Suspect]
     Active Substance: ENOXAPARIN SODIUM
     Indication: ATRIAL FIBRILLATION
     Route: 058
     Dates: start: 20201222, end: 20210101
  4. LYRICA [Concomitant]
     Active Substance: PREGABALIN
     Dosage: 75 MG, BID
  5. MEDROL [Concomitant]
     Active Substance: METHYLPREDNISOLONE
     Dosage: 16 MG, QD
  6. STEOVIT FORTE [Concomitant]
  7. REDOMEX [Concomitant]
     Active Substance: AMITRIPTYLINE HYDROCHLORIDE
     Indication: TENSION HEADACHE
     Dosage: 25 MG, BID
  8. DAFALGAN [Concomitant]
     Active Substance: ACETAMINOPHEN
     Dosage: 1000 MG, 2?3 TIMES A DAY
  9. PANTOMED [DEXPANTHENOL] [Concomitant]
     Dosage: 20 MG, QD
  10. MOVICOLON [Concomitant]
     Active Substance: POLYETHYLENE GLYCOL 3350\POTASSIUM CHLORIDE\SODIUM BICARBONATE\SODIUM CHLORIDE
     Dosage: 1 DF, QD

REACTIONS (8)
  - Acute kidney injury [Fatal]
  - Peripheral coldness [Fatal]
  - Breast haematoma [Fatal]
  - Hypotension [Fatal]
  - Shock [Fatal]
  - Hyperkalaemia [Fatal]
  - Somnolence [Fatal]
  - Tachycardia [Fatal]

NARRATIVE: CASE EVENT DATE: 20201231
